FAERS Safety Report 9885285 (Version 1)
Quarter: 2014Q1

REPORT INFORMATION
  Report Type: Spontaneous
  Country: US (occurrence: US)
  Receive Date: 20140210
  Receipt Date: 20140210
  Transmission Date: 20141002
  Serious: No
  Sender: FDA-Public Use
  Company Number: US-PFIZER INC-2014036130

PATIENT
  Age: 73 Year
  Sex: Male
  Weight: 54.42 kg

DRUGS (3)
  1. LYRICA [Suspect]
     Indication: FIBROMYALGIA
     Dosage: TWO TEASPOONFUL (20 MG/ML), 2X/DAY
     Route: 048
  2. LYRICA [Suspect]
     Dosage: 10 MG/ML, DAILY
     Route: 048
     Dates: start: 20140201
  3. LYRICA [Suspect]
     Dosage: 6 MG/ML, DAILY
     Route: 048
     Dates: start: 20140204

REACTIONS (3)
  - Nasal congestion [Recovered/Resolved]
  - Ear discomfort [Recovered/Resolved]
  - Gastric disorder [Recovered/Resolved]
